FAERS Safety Report 20847480 (Version 1)
Quarter: 2022Q2

REPORT INFORMATION
  Report Type: Spontaneous
  Country: US (occurrence: US)
  Receive Date: 20220519
  Receipt Date: 20220519
  Transmission Date: 20220721
  Serious: Yes (Hospitalization, Other)
  Sender: FDA-Public Use
  Company Number: US-ABBVIE-22K-163-4399680-00

PATIENT
  Sex: Male

DRUGS (1)
  1. IMBRUVICA [Suspect]
     Active Substance: IBRUTINIB
     Indication: Chronic lymphocytic leukaemia
     Route: 048
     Dates: end: 20220516

REACTIONS (5)
  - Haemolytic anaemia [Unknown]
  - Hospitalisation [Unknown]
  - Hypotension [Unknown]
  - Cardiac disorder [Unknown]
  - Infection [Unknown]

NARRATIVE: CASE EVENT DATE: 20220501
